FAERS Safety Report 9186245 (Version 1)
Quarter: 2013Q1

REPORT INFORMATION
  Report Type: Spontaneous
  Country: US (occurrence: None)
  Receive Date: 20120628
  Receipt Date: 20120628
  Transmission Date: 20140127
  Serious: Yes (Disabling)
  Sender: FDA-Public Use
  Company Number: PHHY2011US61244

PATIENT
  Age: 74 Year
  Sex: Female

DRUGS (3)
  1. RECLAST [Suspect]
     Indication: OSTEOPOROSIS POSTMENOPAUSAL
     Dosage: 5 MG/100ML, ONCE A YEAR, INTRAVENOUS
  2. ALLEGRA [Concomitant]
  3. PREMPRO (ESTROGEN CONJUGATED MEDROXYPROGESTERONE ACETATE) [Concomitant]

REACTIONS (3)
  - Oedema peripheral [None]
  - Musculoskeletal pain [None]
  - Arthralgia [None]
